FAERS Safety Report 7995786-3 (Version None)
Quarter: 2011Q4

REPORT INFORMATION
  Report Type: 
  Country: None (occurrence: None)
  Receive Date: 20111220
  Receipt Date: 20111213
  Transmission Date: 20120403
  Serious: Yes (Other)
  Sender: FDA-Public Use
  Company Number: PHHY2011GB108453

PATIENT
  Sex: Male

DRUGS (11)
  1. OMEPRAZOLE [Concomitant]
     Dosage: UNK UKN, UNK
  2. FERROUS FUMARATE [Concomitant]
     Dosage: UNK UKN, UNK
  3. PROPRANOLOL [Concomitant]
     Dosage: UNK UKN, UNK
  4. RISEDRONATE SODIUM [Concomitant]
     Dosage: UNK UKN, UNK
  5. METHOTREXATE [Suspect]
     Dosage: UNK UKN, UNK
     Dates: start: 20050901, end: 20070601
  6. CALCICHEW D3 [Concomitant]
     Dosage: UNK UKN, UNK
  7. LACTULOSE [Concomitant]
     Dosage: UNK UKN, UNK
  8. SPIRONOLACTONE [Concomitant]
     Dosage: UNK UKN, UNK
  9. METHOTREXATE [Suspect]
     Indication: RHEUMATOID ARTHRITIS
     Dosage: UNK UKN, UNK
     Dates: start: 19991201, end: 20030601
  10. HYDROCORTISONE [Concomitant]
     Indication: ADRENAL INSUFFICIENCY
     Dosage: UNK UKN, UNK
  11. HYDROXYCHLOROQUINE SULFATE [Concomitant]
     Dosage: UNK UKN, UNK

REACTIONS (2)
  - LIVER FUNCTION TEST ABNORMAL [None]
  - NODULAR REGENERATIVE HYPERPLASIA [None]
